FAERS Safety Report 10189891 (Version 1)
Quarter: 2014Q2

REPORT INFORMATION
  Report Type: Spontaneous
  Country: US (occurrence: US)
  Receive Date: 20140522
  Receipt Date: 20140522
  Transmission Date: 20141212
  Serious: Yes (Other)
  Sender: FDA-Public Use
  Company Number: US-SANOFI-AVENTIS-2013SA072930

PATIENT
  Age: 65 Year
  Sex: Female

DRUGS (4)
  1. LANTUS [Suspect]
     Indication: TYPE 1 DIABETES MELLITUS
     Dosage: PRODUCT START DATE: ABOUT 10 YEARS AGO DOSE:15 UNIT(S)
     Route: 058
  2. LANTUS [Suspect]
     Indication: TYPE 1 DIABETES MELLITUS
     Dosage: PRODUCT START DATE: ABOUT 10 YEARS AGO DOSE:15 UNIT(S)
     Route: 058
  3. LANTUS [Suspect]
     Indication: TYPE 1 DIABETES MELLITUS
     Dosage: PRODUCT START DATE: ABOUT 10 YEARS AGO DOSE:20 UNIT(S)
     Route: 058
  4. LANTUS [Suspect]
     Indication: TYPE 1 DIABETES MELLITUS
     Dosage: PRODUCT START DATE: ABOUT 10 YEARS AGO DOSE:20 UNIT(S)
     Route: 058

REACTIONS (2)
  - Hypoglycaemic seizure [Not Recovered/Not Resolved]
  - Blood glucose decreased [Not Recovered/Not Resolved]
